FAERS Safety Report 18187685 (Version 10)
Quarter: 2021Q2

REPORT INFORMATION
  Report Type: Report from Study
  Country: US (occurrence: US)
  Receive Date: 20200824
  Receipt Date: 20210610
  Transmission Date: 20210717
  Serious: Yes (Hospitalization)
  Sender: FDA-Public Use
  Company Number: US-GLAXOSMITHKLINE-US2020TSO013895

PATIENT
  Age: 45 Year
  Sex: Female

DRUGS (17)
  1. NIRAPARIB [Suspect]
     Active Substance: NIRAPARIB
     Dosage: 100 MG, QD
  2. NIRAPARIB [Suspect]
     Active Substance: NIRAPARIB
     Dosage: 100 MG, QD ALTERNATING WITH 200 MG DAILY
     Route: 048
     Dates: start: 20200122
  3. NIRAPARIB [Suspect]
     Active Substance: NIRAPARIB
     Dosage: 100 MG, QD
     Route: 065
  4. NIRAPARIB [Suspect]
     Active Substance: NIRAPARIB
     Dosage: 100 MG, QD
     Route: 048
  5. NIRAPARIB [Suspect]
     Active Substance: NIRAPARIB
     Dosage: 100 MG, QD
     Dates: start: 20201018
  6. NIRAPARIB [Suspect]
     Active Substance: NIRAPARIB
     Dosage: 100 MG, QD
     Route: 065
  7. NIRAPARIB [Suspect]
     Active Substance: NIRAPARIB
     Dosage: 100 MG, QD
  8. NIRAPARIB [Suspect]
     Active Substance: NIRAPARIB
     Dosage: 200 MG, QD
     Route: 065
  9. NIRAPARIB [Suspect]
     Active Substance: NIRAPARIB
     Dosage: 100 MG, QD, AT NIGHT AFTER DINNER
  10. NIRAPARIB [Suspect]
     Active Substance: NIRAPARIB
     Dosage: UNK (100 MG ALTERNATING WITH 200 MG DAILY)
  11. MAGNESIUM [Concomitant]
     Active Substance: MAGNESIUM
     Indication: PRODUCT USED FOR UNKNOWN INDICATION
     Dosage: UNK
  12. VITAMIN D [Concomitant]
     Active Substance: VITAMIN D NOS
     Indication: PRODUCT USED FOR UNKNOWN INDICATION
     Dosage: UNK
  13. NIRAPARIB [Suspect]
     Active Substance: NIRAPARIB
     Indication: OVARIAN CANCER
     Dosage: 200 MG, QD
     Route: 048
     Dates: start: 20200107
  14. NIRAPARIB [Suspect]
     Active Substance: NIRAPARIB
     Dosage: 100 MG, QD
     Route: 065
  15. NIRAPARIB [Suspect]
     Active Substance: NIRAPARIB
     Dosage: UNK
     Route: 065
  16. NIRAPARIB [Suspect]
     Active Substance: NIRAPARIB
     Dosage: 100 MG, QD (QPM)
  17. NIRAPARIB [Suspect]
     Active Substance: NIRAPARIB
     Dosage: 100 MG, QD
     Route: 048

REACTIONS (34)
  - Asthenia [Not Recovered/Not Resolved]
  - Oropharyngeal pain [Unknown]
  - Hypertension [Unknown]
  - Off label use [Unknown]
  - Product dose omission issue [Unknown]
  - Product administration error [Unknown]
  - Dry mouth [Not Recovered/Not Resolved]
  - Fatigue [Unknown]
  - Dry eye [Unknown]
  - Pyrexia [Unknown]
  - Hypoaesthesia [Not Recovered/Not Resolved]
  - Nocturia [Unknown]
  - Dysstasia [Unknown]
  - Sensation of foreign body [Not Recovered/Not Resolved]
  - Pain in extremity [Not Recovered/Not Resolved]
  - Gait disturbance [Unknown]
  - Hospitalisation [Unknown]
  - Hyperhidrosis [Not Recovered/Not Resolved]
  - Nausea [Recovered/Resolved]
  - Eructation [Not Recovered/Not Resolved]
  - Stress [Unknown]
  - Weight increased [Unknown]
  - Taste disorder [Unknown]
  - Sciatica [Not Recovered/Not Resolved]
  - Dysgeusia [Unknown]
  - Protein total increased [Unknown]
  - Hot flush [Not Recovered/Not Resolved]
  - Retching [Unknown]
  - Neuralgia [Not Recovered/Not Resolved]
  - Dehydration [Unknown]
  - Oropharyngeal discomfort [Unknown]
  - Chills [Unknown]
  - Dry skin [Unknown]
  - Cough [Unknown]

NARRATIVE: CASE EVENT DATE: 202011
